FAERS Safety Report 13937931 (Version 2)
Quarter: 2018Q1

REPORT INFORMATION
  Report Type: Spontaneous
  Country: US (occurrence: US)
  Receive Date: 20170905
  Receipt Date: 20180111
  Transmission Date: 20180508
  Serious: Yes (Other)
  Sender: FDA-Public Use
  Company Number: US-BAYER-2017-168023

PATIENT
  Age: 37 Year
  Sex: Female
  Weight: 90.7 kg

DRUGS (4)
  1. MIRENA [Suspect]
     Active Substance: LEVONORGESTREL
     Indication: CONTRACEPTION
     Dosage: 20 MCG/24HR, CONT
     Route: 015
     Dates: start: 20170508, end: 20170829
  2. MIRENA [Suspect]
     Active Substance: LEVONORGESTREL
     Indication: CONTRACEPTION
  3. MIRENA [Suspect]
     Active Substance: LEVONORGESTREL
     Indication: CONTRACEPTION
     Dosage: 20 MCG/24HR, CONT
     Route: 015
     Dates: start: 20170829, end: 20170829
  4. BETADINE [Concomitant]
     Active Substance: POVIDONE-IODINE
     Dosage: 20 UNK, UNK
     Dates: start: 20170829, end: 20170829

REACTIONS (3)
  - Device deployment issue [None]
  - Uterine haemorrhage [None]
  - Device dislocation [None]

NARRATIVE: CASE EVENT DATE: 20170829
